FAERS Safety Report 4447818-7 (Version None)
Quarter: 2004Q3

REPORT INFORMATION
  Report Type: 
  Country: None (occurrence: None)
  Receive Date: 20040812
  Receipt Date: 20040525
  Transmission Date: 20050211
  Serious: No
  Sender: FDA-Public Use
  Company Number: USA040568492

PATIENT
  Age: 54 Year
  Sex: Male
  Weight: 91 kg

DRUGS (4)
  1. CIALIS [Suspect]
     Indication: ERECTILE DYSFUNCTION
     Dosage: 20 MG
     Dates: start: 20040201
  2. KLONOPIN [Concomitant]
  3. VICODIN [Concomitant]
  4. PREDNISONE [Concomitant]

REACTIONS (2)
  - LUMBAR VERTEBRAL FRACTURE [None]
  - THERAPEUTIC RESPONSE DECREASED [None]
